FAERS Safety Report 24682415 (Version 1)
Quarter: 2024Q4

REPORT INFORMATION
  Report Type: Other
  Country: AU (occurrence: AU)
  Receive Date: 20241130
  Receipt Date: 20241130
  Transmission Date: 20250114
  Serious: Yes (Life-Threatening, Hospitalization, Other)
  Sender: GUARDIAN DRUG COMPANY
  Company Number: AU-Guardian Drug Company-2166226

PATIENT
  Sex: Female

DRUGS (1)
  1. CHILDRENS IBUPROFEN [Suspect]
     Active Substance: IBUPROFEN
     Indication: Foetal exposure during pregnancy

REACTIONS (8)
  - Papillary muscle rupture [Unknown]
  - Foetal exposure during pregnancy [Unknown]
  - Atrial septal defect [Unknown]
  - Cyanosis neonatal [Unknown]
  - Right-to-left cardiac shunt [Unknown]
  - Neonatal pulmonary hypertension [Recovering/Resolving]
  - Patent ductus arteriosus [Unknown]
  - Tricuspid valve incompetence [Recovering/Resolving]
